FAERS Safety Report 8955390 (Version 1)
Quarter: 2012Q4

REPORT INFORMATION
  Report Type: 
  Country: FR (occurrence: FR)
  Receive Date: 20121207
  Receipt Date: 20121207
  Transmission Date: 20130627
  Serious: Yes (Life-Threatening, Hospitalization)
  Sender: FDA-Public Use
  Company Number: FR-B.I. PHARMACEUTICALS,INC./RIDGEFIELD-2012-FF-01858FF

PATIENT
  Age: 77 Year
  Sex: Male
  Weight: 78 kg

DRUGS (8)
  1. PRADAXA [Suspect]
     Indication: HIP ARTHROPLASTY
     Dosage: 150 mg
     Route: 048
     Dates: start: 20121017, end: 20121023
  2. ATARAX [Concomitant]
  3. EZETROL [Concomitant]
  4. COVERAM [Concomitant]
  5. TOPALGIC [Concomitant]
  6. CARDENSIEL [Concomitant]
  7. KARDEGIC [Concomitant]
  8. EFFERALGAN CODEINE [Concomitant]

REACTIONS (2)
  - Haemorrhage [Not Recovered/Not Resolved]
  - Accidental overdose [Not Recovered/Not Resolved]
